FAERS Safety Report 25852750 (Version 1)
Quarter: 2025Q3

REPORT INFORMATION
  Report Type: Report from Study
  Country: US (occurrence: US)
  Receive Date: 20250926
  Receipt Date: 20250926
  Transmission Date: 20251021
  Serious: Yes (Hospitalization, Other)
  Sender: GILEAD
  Company Number: US-GILEAD-2025-0729822

PATIENT
  Age: 66 Year
  Sex: Female

DRUGS (2)
  1. AZTREONAM LYSINE [Suspect]
     Active Substance: AZTREONAM LYSINE
     Indication: Bronchiectasis
     Dosage: 75 MG, TID (NHALE THE CONTENTS OF 1 VIAL THREE TIMES DAILY VIA NEBULIZER FOR 28 DAYS ON, 28 DAYS)
     Route: 055
     Dates: start: 20241218
  2. AZTREONAM LYSINE [Suspect]
     Active Substance: AZTREONAM LYSINE
     Dosage: 75 MG, TID (NHALE THE CONTENTS OF 1 VIAL THREE TIMES DAILY VIA NEBULIZER FOR 28 DAYS ON, 28 DAYS)
     Route: 055
     Dates: start: 20241218

REACTIONS (3)
  - Pneumonia [Recovered/Resolved]
  - Shoulder fracture [Recovered/Resolved]
  - Product use in unapproved indication [Not Recovered/Not Resolved]

NARRATIVE: CASE EVENT DATE: 20250401
